FAERS Safety Report 9880338 (Version 2)
Quarter: 2014Q1

REPORT INFORMATION
  Report Type: Report from Study
  Country: US (occurrence: US)
  Receive Date: 20140207
  Receipt Date: 20140207
  Transmission Date: 20141002
  Serious: Yes (Death)
  Sender: FDA-Public Use
  Company Number: US-ROCHE-1278100

PATIENT
  Sex: Female

DRUGS (10)
  1. ZELBORAF [Suspect]
     Indication: METASTATIC MALIGNANT MELANOMA
     Dosage: 4 TABLETS BY MOUTH TWO TIMES DAILY
     Route: 048
  2. NEURONTIN (UNITED STATES) [Concomitant]
     Dosage: IN THE MORNING
     Route: 048
  3. MOTRIN [Concomitant]
     Dosage: EVERY 6 HOURS AS NEEDED
     Route: 048
  4. MIRALAX [Concomitant]
     Route: 048
  5. VITAMIN B12 [Concomitant]
     Dosage: 1 CAPSULE
     Route: 065
  6. COUMADIN [Concomitant]
     Dosage: AT NIGHT
     Route: 065
  7. NORCO [Concomitant]
     Indication: PAIN
     Dosage: 1-325 MG (TAKE 2 TABLETS EVERY 14 HOURS)
     Route: 048
  8. CARAFATE [Concomitant]
     Dosage: 4 TIMES A DAY ORAL SUSPENSION
     Route: 048
  9. LANSOPRAZOLE [Concomitant]
     Route: 048
  10. IVIG [Concomitant]
     Route: 065

REACTIONS (10)
  - Death [Fatal]
  - Squamous cell carcinoma of skin [Unknown]
  - Pain in extremity [Unknown]
  - Gait disturbance [Unknown]
  - Alopecia [Unknown]
  - Bone density decreased [Unknown]
  - Weight decreased [Unknown]
  - Asthenia [Unknown]
  - Demyelinating polyneuropathy [Unknown]
  - Malignant melanoma [Unknown]
